FAERS Safety Report 15370549 (Version 1)
Quarter: 2018Q3

REPORT INFORMATION
  Report Type: Spontaneous
  Country: US (occurrence: US)
  Receive Date: 20180904
  Receipt Date: 20180904
  Transmission Date: 20181010
  Serious: Yes (Life-Threatening, Hospitalization, Disabling, Other)
  Sender: FDA-Public Use
  Company Number: None

PATIENT
  Age: 45 Year
  Sex: Female
  Weight: 126 kg

DRUGS (1)
  1. JARDIANCE [Suspect]
     Active Substance: EMPAGLIFLOZIN
     Indication: DIABETES MELLITUS
     Dates: start: 20160731, end: 20180731

REACTIONS (5)
  - Dry gangrene [None]
  - Toe amputation [None]
  - Foot amputation [None]
  - Bedridden [None]
  - Blister [None]

NARRATIVE: CASE EVENT DATE: 20180712
